FAERS Safety Report 18384979 (Version 1)
Quarter: 2020Q4

REPORT INFORMATION
  Report Type: Spontaneous
  Country: AT (occurrence: AT)
  Receive Date: 20201015
  Receipt Date: 20201015
  Transmission Date: 20210114
  Serious: Yes (Other)
  Sender: FDA-Public Use
  Company Number: AT-AMGEN-AUTSP2020165457

PATIENT
  Age: 19 Year
  Sex: Male

DRUGS (1)
  1. OTEZLA [Suspect]
     Active Substance: APREMILAST
     Indication: PSORIASIS
     Dosage: UNK (AS INDICATED)
     Route: 065
     Dates: start: 202003

REACTIONS (2)
  - Psoriasis [Not Recovered/Not Resolved]
  - Respiratory tract infection [Unknown]

NARRATIVE: CASE EVENT DATE: 202009
